FAERS Safety Report 6214660-6 (Version None)
Quarter: 2009Q2

REPORT INFORMATION
  Report Type: 
  Country: None (occurrence: None)
  Receive Date: 20090604
  Receipt Date: 20090525
  Transmission Date: 20091009
  Serious: Yes (Hospitalization)
  Sender: FDA-Public Use
  Company Number: DE-PFIZER INC-2008152855

PATIENT
  Age: 56 Year

DRUGS (16)
  1. LYRICA [Suspect]
     Indication: NEURALGIA
     Dosage: 75 MG, 2X/DAY
     Route: 048
     Dates: start: 20060612, end: 20060629
  2. CARBAMAZEPINE [Suspect]
     Dosage: 200 MG, 1X/DAY
     Route: 048
     Dates: start: 20060426
  3. CARBAMAZEPINE [Suspect]
     Dosage: 200MG-0-400MG
     Route: 048
  4. MAGNESIUM [Concomitant]
     Indication: SUPPLEMENTATION THERAPY
     Dosage: ONCE DAILY
     Route: 048
     Dates: start: 20060614, end: 20060705
  5. CALCIUM [Concomitant]
     Indication: SUPPLEMENTATION THERAPY
     Dosage: ONCE DAILY
     Route: 048
     Dates: start: 20060614, end: 20060705
  6. IBUPROFEN [Concomitant]
     Indication: PAIN
     Dosage: 300 MG, 2X/DAY
     Route: 048
     Dates: start: 20060401
  7. DURAGESIC-100 [Concomitant]
     Indication: PAIN
     Dosage: 50MIC.G EVERY 3RD DAY
     Route: 061
     Dates: start: 20060401
  8. DEXAMETHASONE [Concomitant]
     Indication: PROPHYLAXIS
     Dosage: 4 MG, 1X/DAY
     Route: 048
     Dates: start: 20060427
  9. DEXAMETHASONE [Concomitant]
     Dosage: 4 MG, 2X/DAY
     Route: 048
  10. DEXAMETHASONE [Concomitant]
     Dosage: 8 MG, 2X/DAY
     Route: 048
  11. LACTULOSE [Concomitant]
     Indication: CONSTIPATION
     Dosage: 10 ML, AS NEEDED
     Route: 048
     Dates: start: 20060401
  12. NEXIUM [Concomitant]
     Indication: PROPHYLAXIS
     Dosage: 20 MG, 1X/DAY
     Route: 048
     Dates: start: 20060418
  13. TAVOR [Concomitant]
     Indication: RESTLESSNESS
     Dosage: 0.5 MG, 1X/DAY
     Route: 048
     Dates: start: 20060418
  14. AMITRIPTYLINE [Concomitant]
     Indication: DEPRESSION
     Dosage: 20 MG, 1X/DAY
     Route: 048
     Dates: start: 20060529
  15. HALOPERIDOL [Concomitant]
     Indication: RESTLESSNESS
     Dosage: 3 GTT, 3X/DAY
     Route: 048
     Dates: start: 20060427
  16. TORSEMIDE [Concomitant]
     Indication: POLYURIA
     Dosage: 5 MG, 1X/DAY
     Dates: start: 20060702

REACTIONS (1)
  - STEVENS-JOHNSON SYNDROME [None]
